FAERS Safety Report 7765829-0 (Version None)
Quarter: 2011Q3

REPORT INFORMATION
  Report Type: 
  Country: None (occurrence: None)
  Receive Date: 20110921
  Receipt Date: 20110624
  Transmission Date: 20111222
  Serious: No
  Sender: FDA-Public Use
  Company Number: US-BAYER-2011-056585

PATIENT
  Sex: Female
  Weight: 54.422 kg

DRUGS (10)
  1. FLAX SEED OIL [Concomitant]
  2. LOVASTATIN [Concomitant]
  3. ASCORBIC ACID [Concomitant]
  4. VITAMIN E [Concomitant]
  5. COD LIVER [Concomitant]
  6. ALEVE (CAPLET) [Suspect]
     Indication: ARTHRITIS
     Dosage: 2 CAPLETS, QD
     Route: 048
     Dates: start: 20110610, end: 20110624
  7. MULTI-VITAMIN [Concomitant]
  8. ACETYLSALICYLIC ACID SRT [Concomitant]
     Indication: ISCHAEMIC HEART DISEASE PROPHYLAXIS
  9. ACETAMINOPHEN [Concomitant]
  10. CALCIUM CARBONATE [Concomitant]

REACTIONS (1)
  - ARTHRALGIA [None]
